FAERS Safety Report 13952662 (Version 1)
Quarter: 2017Q3

REPORT INFORMATION
  Report Type: Spontaneous
  Country: JP (occurrence: JP)
  Receive Date: 20170911
  Receipt Date: 20170911
  Transmission Date: 20171128
  Serious: Yes (Hospitalization)
  Sender: FDA-Public Use
  Company Number: JP-STRIDES ARCOLAB LIMITED-2017SP012457

PATIENT

DRUGS (1)
  1. IBUPROFEN. [Suspect]
     Active Substance: IBUPROFEN
     Indication: PRODUCT USED FOR UNKNOWN INDICATION
     Dosage: 1-2 TIMES A DAY, UNK
     Route: 048

REACTIONS (15)
  - Anuria [Unknown]
  - Toxic shock syndrome streptococcal [Unknown]
  - Pneumonitis [Unknown]
  - Acute respiratory failure [Unknown]
  - Lymph node pain [Unknown]
  - Pleural effusion [Unknown]
  - Erythema [Unknown]
  - Disseminated intravascular coagulation [Unknown]
  - Renal impairment [Recovered/Resolved]
  - Pyrexia [Unknown]
  - Rash [Unknown]
  - Swelling [Unknown]
  - Lymphadenopathy [Unknown]
  - Blood pressure decreased [Unknown]
  - Pneumonia [Unknown]
